FAERS Safety Report 4851210-0 (Version None)
Quarter: 2005Q4

REPORT INFORMATION
  Report Type: 
  Country: None (occurrence: None)
  Receive Date: 20051208
  Receipt Date: 20051128
  Transmission Date: 20060501
  Serious: Yes (Other)
  Sender: FDA-Public Use
  Company Number: 2005162299

PATIENT
  Age: 4 Year
  Sex: Female
  Weight: 15.4223 kg

DRUGS (1)
  1. BENADRYL CHILDREN'S ALLERGY/COLD (DIPHENHYDRAMINE, PSEUDOEPHEDRINE) [Suspect]
     Indication: NASOPHARYNGITIS
     Dosage: 1 TABLET EVERY 4 HOURS X 2
     Dates: start: 20051101, end: 20051101

REACTIONS (1)
  - HALLUCINATION [None]
